FAERS Safety Report 20781390 (Version 4)
Quarter: 2022Q2

REPORT INFORMATION
  Report Type: Spontaneous
  Country: US (occurrence: US)
  Receive Date: 20220504
  Receipt Date: 20220620
  Transmission Date: 20220720
  Serious: No
  Sender: FDA-Public Use
  Company Number: US-AMGEN-USASP2022075982

PATIENT
  Age: 57 Year
  Sex: Female

DRUGS (5)
  1. AIMOVIG [Suspect]
     Active Substance: ERENUMAB-AOOE
     Indication: Product used for unknown indication
     Dosage: 140 MILLIGRAM
     Route: 065
     Dates: start: 2022
  2. EMGALITY [Concomitant]
     Active Substance: GALCANEZUMAB-GNLM
     Indication: Product used for unknown indication
     Dosage: UNK, UNK
     Route: 065
  3. EMGALITY [Concomitant]
     Active Substance: GALCANEZUMAB-GNLM
     Route: 065
  4. EMGALITY [Concomitant]
     Active Substance: GALCANEZUMAB-GNLM
     Route: 065
  5. EMGALITY [Concomitant]
     Active Substance: GALCANEZUMAB-GNLM
     Route: 065

REACTIONS (3)
  - Wrong technique in product usage process [Unknown]
  - Product packaging issue [Unknown]
  - Device difficult to use [Unknown]

NARRATIVE: CASE EVENT DATE: 20220501
